FAERS Safety Report 10415641 (Version 1)
Quarter: 2014Q3

REPORT INFORMATION
  Report Type: Spontaneous
  Country: US (occurrence: None)
  Receive Date: 20140827
  Receipt Date: 20140827
  Transmission Date: 20150326
  Serious: Yes (Other)
  Sender: FDA-Public Use
  Company Number: None

PATIENT
  Age: 82 Year
  Sex: Male
  Weight: 91.63 kg

DRUGS (10)
  1. TRAMADOL [Suspect]
     Active Substance: TRAMADOL
     Indication: PAIN
     Dosage: 1 TABLET PRN/AS NEEDED ORAL
     Route: 048
     Dates: start: 20140815, end: 20140824
  2. RIVAROXABAN [Concomitant]
     Active Substance: RIVAROXABAN
  3. ONDANSETRON [Concomitant]
     Active Substance: ONDANSETRON
  4. DOCUSATE SODIUM. [Concomitant]
     Active Substance: DOCUSATE SODIUM
  5. METOPROLOL TARTRATE. [Concomitant]
     Active Substance: METOPROLOL TARTRATE
  6. CIPROFLOXAXIN [Concomitant]
  7. ASPIRIN. [Concomitant]
     Active Substance: ASPIRIN
  8. LISINOPRIL. [Concomitant]
     Active Substance: LISINOPRIL
  9. ACETAMINOPHEN. [Concomitant]
     Active Substance: ACETAMINOPHEN
  10. BISCODYL [Concomitant]
     Active Substance: BISACODYL

REACTIONS (3)
  - Unresponsive to stimuli [None]
  - Generalised tonic-clonic seizure [None]
  - Headache [None]

NARRATIVE: CASE EVENT DATE: 20140824
